FAERS Safety Report 17845633 (Version 1)
Quarter: 2020Q2

REPORT INFORMATION
  Report Type: Spontaneous
  Country: US (occurrence: US)
  Receive Date: 20200529
  Receipt Date: 20200529
  Transmission Date: 20200714
  Serious: Yes (Other)
  Sender: FDA-Public Use
  Company Number: None

PATIENT
  Age: 23 Year
  Sex: Female
  Weight: 83.25 kg

DRUGS (1)
  1. ETONOGESTREL/ ETHINYL ESTRADIOL VAGINAL RING [Suspect]
     Active Substance: ETHINYL ESTRADIOL\ETONOGESTREL
     Indication: CONTRACEPTION
     Dosage: ?          QUANTITY:1 RING;OTHER FREQUENCY:1 EVERY 3 WEEKS;?
     Route: 067
     Dates: start: 20200214, end: 20200514

REACTIONS (4)
  - Product substitution issue [None]
  - Metrorrhagia [None]
  - Pregnancy with contraceptive device [None]
  - Abortion [None]

NARRATIVE: CASE EVENT DATE: 20200312
